FAERS Safety Report 17575431 (Version 1)
Quarter: 2020Q1

REPORT INFORMATION
  Report Type: Spontaneous
  Country: US (occurrence: US)
  Receive Date: 20200318
  Receipt Date: 20200318
  Transmission Date: 20200409
  Serious: No
  Sender: FDA-Public Use
  Company Number: None

PATIENT
  Age: 27 Year
  Sex: Female

DRUGS (1)
  1. PULMOZYME [Suspect]
     Active Substance: DORNASE ALFA
     Dosage: ?          OTHER DOSE:2.5MG/2.5ML;?
     Route: 055
     Dates: start: 201009

REACTIONS (3)
  - Haemoptysis [None]
  - Pulmonary haemorrhage [None]
  - Infective pulmonary exacerbation of cystic fibrosis [None]

NARRATIVE: CASE EVENT DATE: 20200219
